FAERS Safety Report 16718880 (Version 1)
Quarter: 2019Q3

REPORT INFORMATION
  Report Type: Spontaneous
  Country: GB (occurrence: GB)
  Receive Date: 20190820
  Receipt Date: 20190820
  Transmission Date: 20191005
  Serious: Yes (Other)
  Sender: FDA-Public Use
  Company Number: GB-GLAXOSMITHKLINE-GB2019148190

PATIENT
  Age: 30 Year
  Sex: Male

DRUGS (2)
  1. COBICISTAT [Suspect]
     Active Substance: COBICISTAT
     Indication: PRODUCT USED FOR UNKNOWN INDICATION
     Dosage: UNK
     Route: 065
  2. FLUTICASONE. [Suspect]
     Active Substance: FLUTICASONE
     Indication: ASTHMA
     Dosage: 92/22
     Route: 055
     Dates: start: 20190612

REACTIONS (2)
  - Adrenal suppression [Recovering/Resolving]
  - Labelled drug-drug interaction medication error [Unknown]
